FAERS Safety Report 22626085 (Version 1)
Quarter: 2023Q2

REPORT INFORMATION
  Report Type: Spontaneous
  Country: JP (occurrence: JP)
  Receive Date: 20230621
  Receipt Date: 20230621
  Transmission Date: 20230721
  Serious: Yes (Hospitalization, Other)
  Sender: FDA-Public Use
  Company Number: JP-ONO-2022JP017234

PATIENT
  Age: 63 Year
  Sex: Male

DRUGS (5)
  1. OPDIVO [Suspect]
     Active Substance: NIVOLUMAB
     Indication: Oesophageal carcinoma
     Dosage: 240 MG, Q2W
     Route: 041
     Dates: start: 20220309, end: 20220406
  2. OPDIVO [Suspect]
     Active Substance: NIVOLUMAB
     Route: 042
  3. MIYA-BM [Concomitant]
     Active Substance: CLOSTRIDIUM BUTYRICUM SPORES STRAIN M-55
     Dosage: 1 G, Q8H
     Route: 048
  4. VONOPRAZAN FUMARATE [Concomitant]
     Active Substance: VONOPRAZAN FUMARATE
     Dosage: 10 MG, EVERYDAY
     Route: 048
  5. BROTIZOLAM [Concomitant]
     Active Substance: BROTIZOLAM
     Dosage: 0.25 MG, EVERYDAY
     Route: 048

REACTIONS (4)
  - Adrenal insufficiency [Unknown]
  - Cholangitis [Unknown]
  - Type 1 diabetes mellitus [Unknown]
  - Immune-mediated cholangitis [Not Recovered/Not Resolved]

NARRATIVE: CASE EVENT DATE: 20220506
